FAERS Safety Report 5150412-6 (Version None)
Quarter: 2006Q4

REPORT INFORMATION
  Report Type: 
  Country: None (occurrence: None)
  Receive Date: 20061114
  Receipt Date: 20050111
  Transmission Date: 20070319
  Serious: Yes (Hospitalization)
  Sender: FDA-Public Use
  Company Number: FR-ROCHE-391986

PATIENT
  Age: 56 Year
  Sex: Male
  Weight: 78.5 kg

DRUGS (15)
  1. DACLIZUMAB [Suspect]
     Route: 042
     Dates: start: 20041216, end: 20041216
  2. DACLIZUMAB [Suspect]
     Route: 042
     Dates: start: 20041230, end: 20041230
  3. MYCOPHENOLATE MOFETIL [Suspect]
     Route: 048
     Dates: start: 20041216, end: 20050102
  4. MYCOPHENOLATE MOFETIL [Suspect]
     Route: 048
     Dates: start: 20050102, end: 20050107
  5. MYCOPHENOLATE MOFETIL [Suspect]
     Route: 048
     Dates: start: 20050107, end: 20050124
  6. MYCOPHENOLATE MOFETIL [Suspect]
     Route: 048
     Dates: start: 20050124, end: 20050206
  7. CYCLOSPORINE [Suspect]
     Route: 048
     Dates: start: 20041219
  8. CYCLOSPORINE [Suspect]
     Dosage: 325 MG = 175 MG + 150 MG DOSES.
     Route: 048
  9. CORTANCYL [Suspect]
     Route: 048
     Dates: start: 20041216
  10. CORTANCYL [Suspect]
     Route: 048
  11. CORDARONE [Concomitant]
     Route: 048
     Dates: start: 20041220
  12. ATORVASTATIN CALCIUM [Concomitant]
     Route: 048
     Dates: start: 20041220
  13. ASPIRIN [Concomitant]
     Route: 048
     Dates: start: 20041220
  14. OMEPRAZOLE [Concomitant]
     Route: 048
     Dates: start: 20041216
  15. TRIMETHOPRIM [Concomitant]
     Route: 048
     Dates: start: 20041222, end: 20050107

REACTIONS (5)
  - CALCULUS URINARY [None]
  - NEPHRITIS INTERSTITIAL [None]
  - OEDEMA PERIPHERAL [None]
  - VIRAL TEST POSITIVE [None]
  - VIRUS URINE TEST POSITIVE [None]
